FAERS Safety Report 18202340 (Version 2)
Quarter: 2020Q3

REPORT INFORMATION
  Report Type: Spontaneous
  Country: JP (occurrence: JP)
  Receive Date: 20200827
  Receipt Date: 20200908
  Transmission Date: 20201103
  Serious: Yes (Hospitalization, Other)
  Sender: FDA-Public Use
  Company Number: JP-ACCORD-197521

PATIENT
  Age: 74 Year
  Sex: Female

DRUGS (3)
  1. FLUOROURACIL. [Suspect]
     Active Substance: FLUOROURACIL
     Indication: RECTAL CANCER STAGE III
     Dosage: 46 H INFUSION OF 2,400 MG/M2
     Route: 040
  2. FOLINIC ACID [Suspect]
     Active Substance: LEUCOVORIN
     Indication: RECTAL CANCER STAGE III
     Dosage: EVERY 2 WEEKS, INFUSION OVER 2 H
  3. OXALIPLATIN. [Suspect]
     Active Substance: OXALIPLATIN
     Indication: RECTAL CANCER STAGE III
     Dosage: ON DAY 1, EVERY 2 WEEKS

REACTIONS (1)
  - Interstitial lung disease [Recovering/Resolving]
